FAERS Safety Report 4470564-0 (Version None)
Quarter: 2004Q4

REPORT INFORMATION
  Report Type: 
  Country: None (occurrence: None)
  Receive Date: 20041005
  Receipt Date: 20040922
  Transmission Date: 20050328
  Serious: Yes (Hospitalization)
  Sender: FDA-Public Use
  Company Number: 200418321BWH

PATIENT
  Age: 48 Year
  Sex: Male

DRUGS (2)
  1. LEVITRA [Suspect]
     Indication: ERECTILE DYSFUNCTION
     Dosage: 30 MG TOTAL DAILY, ORAL : 10 MG, TOTAL DAILY, ORAL : 20 MG, TOTAL DAILY, ORAL
     Route: 048
  2. COCAINE [Concomitant]

REACTIONS (6)
  - BRADYCARDIA [None]
  - CHEST PAIN [None]
  - DRUG ABUSER [None]
  - ELECTROCARDIOGRAM T WAVE INVERSION [None]
  - PALPITATIONS [None]
  - SYNCOPE [None]
